FAERS Safety Report 4930400-2 (Version None)
Quarter: 2006Q1

REPORT INFORMATION
  Report Type: 
  Country: None (occurrence: None)
  Receive Date: 20060118
  Receipt Date: 20050711
  Transmission Date: 20060701
  Serious: No
  Sender: FDA-Public Use
  Company Number: 2005001310

PATIENT
  Age: 74 Year
  Sex: Female
  Weight: 55.7924 kg

DRUGS (3)
  1. TARCEVA [Suspect]
     Indication: NON-SMALL CELL LUNG CANCER
     Dosage: 150 MG (QD), ORAL
     Route: 048
     Dates: start: 20050624, end: 20050702
  2. IRON [Concomitant]
  3. PROZAC [Concomitant]

REACTIONS (7)
  - ABDOMINAL PAIN UPPER [None]
  - DIARRHOEA [None]
  - EPISTAXIS [None]
  - EYE INFLAMMATION [None]
  - FATIGUE [None]
  - HAEMOGLOBIN DECREASED [None]
  - RASH [None]
